FAERS Safety Report 5301778-5 (Version None)
Quarter: 2007Q2

REPORT INFORMATION
  Report Type: 
  Country: None (occurrence: None)
  Receive Date: 20070419
  Receipt Date: 20070404
  Transmission Date: 20071010
  Serious: Yes (Other)
  Sender: FDA-Public Use
  Company Number: GR-AMGEN-UK218241

PATIENT

DRUGS (1)
  1. KINERET [Suspect]
     Indication: RHEUMATOID ARTHRITIS
     Route: 058

REACTIONS (5)
  - EYE INFECTION [None]
  - INJECTION SITE REACTION [None]
  - OVARIAN CANCER [None]
  - RHEUMATOID ARTHRITIS [None]
  - THROMBOCYTOPENIA [None]
